FAERS Safety Report 9012642 (Version 1)
Quarter: 2013Q1

REPORT INFORMATION
  Report Type: Spontaneous
  Country: IT (occurrence: IT)
  Receive Date: 20130114
  Receipt Date: 20130114
  Transmission Date: 20140127
  Serious: Yes (Hospitalization)
  Sender: FDA-Public Use
  Company Number: PHHY2013IT002475

PATIENT
  Sex: Male

DRUGS (5)
  1. LANSOPRAZOLE [Suspect]
  2. CARVEDILOL [Suspect]
  3. FUROSEMIDE [Suspect]
  4. RAMIPRIL [Suspect]
  5. LEVOFLOXACIN [Suspect]

REACTIONS (1)
  - Tendonitis [Unknown]
